FAERS Safety Report 15243784 (Version 1)
Quarter: 2018Q3

REPORT INFORMATION
  Report Type: Spontaneous
  Country: US (occurrence: US)
  Receive Date: 20180806
  Receipt Date: 20180806
  Transmission Date: 20181010
  Serious: No
  Sender: FDA-Public Use
  Company Number: US-SA-2018SA210238

PATIENT
  Sex: Female

DRUGS (2)
  1. ALIROCUMAB PREFILLED PEN [Suspect]
     Active Substance: ALIROCUMAB
     Dosage: UNK, QOW
     Route: 058
  2. PRALUENT [Suspect]
     Active Substance: ALIROCUMAB
     Dosage: UNK, QOW
     Route: 058

REACTIONS (4)
  - Arthritis [Recovering/Resolving]
  - Pain [Recovering/Resolving]
  - Hypotension [Unknown]
  - Dizziness [Not Recovered/Not Resolved]
